FAERS Safety Report 21973968 (Version 1)
Quarter: 2023Q1

REPORT INFORMATION
  Report Type: Spontaneous
  Country: DE (occurrence: None)
  Receive Date: 20230209
  Receipt Date: 20230209
  Transmission Date: 20230418
  Serious: Yes (Hospitalization, Other)
  Sender: FDA-Public Use
  Company Number: 2023A028741

PATIENT
  Age: 33 Year
  Sex: Female
  Weight: 58 kg

DRUGS (1)
  1. SYMBICORT [Suspect]
     Active Substance: BUDESONIDE\FORMOTEROL FUMARATE DIHYDRATE
     Indication: Asthma
     Dosage: 160/4,5 ?G 1-0-1
     Route: 055
     Dates: start: 20220930, end: 20221008

REACTIONS (7)
  - Hallucination, visual [Unknown]
  - Psychotic disorder [Unknown]
  - Hallucination, tactile [Unknown]
  - Derealisation [Unknown]
  - Body dysmorphic disorder [Unknown]
  - Delusion [Unknown]
  - Depersonalisation/derealisation disorder [Unknown]

NARRATIVE: CASE EVENT DATE: 20221008
